FAERS Safety Report 4635554-3 (Version None)
Quarter: 2005Q2

REPORT INFORMATION
  Report Type: 
  Country: None (occurrence: None)
  Receive Date: 20050413
  Receipt Date: 20050401
  Transmission Date: 20051028
  Serious: Yes (Hospitalization)
  Sender: FDA-Public Use
  Company Number: 2005UW05090

PATIENT
  Age: 67 Year
  Sex: Male

DRUGS (7)
  1. IRESSA [Suspect]
     Indication: NON-SMALL CELL LUNG CANCER
     Dosage: 250 MG PO
     Route: 048
  2. CELEXA [Concomitant]
  3. OMEPRAZOLE MUPS [Concomitant]
  4. MAXERAN [Concomitant]
  5. QUETIAPINE [Concomitant]
  6. DECADRON [Concomitant]
  7. RITALIN [Concomitant]

REACTIONS (5)
  - CONFUSIONAL STATE [None]
  - DEPRESSION [None]
  - FATIGUE [None]
  - MUSCLE ATROPHY [None]
  - PNEUMONIA [None]
